FAERS Safety Report 20199028 (Version 3)
Quarter: 2022Q1

REPORT INFORMATION
  Report Type: Report from Study
  Country: US (occurrence: US)
  Receive Date: 20211217
  Receipt Date: 20220215
  Transmission Date: 20220423
  Serious: No
  Sender: FDA-Public Use
  Company Number: US-KYOWAKIRIN-2021BKK021074

PATIENT

DRUGS (6)
  1. CRYSVITA [Suspect]
     Active Substance: BUROSUMAB-TWZA
     Indication: Hereditary hypophosphataemic rickets
     Dosage: 70 MG (COMBINED WITH TWO INJECTIONS OF 30 MG/ML TO ACHIEVE TOTAL DOSE OF 70MG), EVERY 28 DAYS
     Route: 058
     Dates: start: 20190528
  2. CRYSVITA [Suspect]
     Active Substance: BUROSUMAB-TWZA
     Dosage: 70 MG (COMBINED WITH TWO INJECTIONS OF 30 MG/ML TO ACHIEVE TOTAL DOSE OF 70MG), EVERY 28 DAYS
     Route: 058
  3. CRYSVITA [Suspect]
     Active Substance: BUROSUMAB-TWZA
     Indication: Hereditary hypophosphataemic rickets
     Dosage: 70 MG (COMBINED WITH ONE INJECTION OF 10 MG/ML TO ACHIEVE TOTAL DOSE OF 70MG), EVERY 28 DAYS
     Route: 058
     Dates: start: 20190528
  4. CRYSVITA [Suspect]
     Active Substance: BUROSUMAB-TWZA
     Dosage: 70 MG (COMBINED WITH ONE INJECTION OF 10 MG/ML TO ACHIEVE TOTAL DOSE OF 70MG), EVERY 28 DAYS
     Route: 058
  5. CRYSVITA [Suspect]
     Active Substance: BUROSUMAB-TWZA
     Dosage: 80 MG (COMBINED WITH ONE INJECTIONS OF 20 MG/ML TO ACHIEVE TOTAL DOSE OF 80 MG), EVERY 28 DAYS
     Route: 058
  6. CRYSVITA [Suspect]
     Active Substance: BUROSUMAB-TWZA
     Indication: Hereditary hypophosphataemic rickets
     Dosage: 80 MG (COMBINED WITH TWO INJECTIONS OF 30 MG/ML TO ACHIEVE TOTAL DOSE OF 80 MG), EVERY 28 DAYS
     Route: 058

REACTIONS (5)
  - Trichorrhexis [Unknown]
  - Alopecia [Not Recovered/Not Resolved]
  - Dry skin [Not Recovered/Not Resolved]
  - Onychoclasis [Unknown]
  - Hair texture abnormal [Not Recovered/Not Resolved]
